FAERS Safety Report 21582549 (Version 2)
Quarter: 2023Q1

REPORT INFORMATION
  Report Type: Spontaneous
  Country: JP (occurrence: JP)
  Receive Date: 20221111
  Receipt Date: 20230224
  Transmission Date: 20230417
  Serious: Yes (Hospitalization, Other)
  Sender: FDA-Public Use
  Company Number: JP-GSKCHJ-JPCH2022JPN042980AA

PATIENT

DRUGS (1)
  1. NICOTINELL [Suspect]
     Active Substance: NICOTINE
     Indication: Smoking cessation therapy
     Dosage: UNK
     Route: 050
     Dates: start: 20221031

REACTIONS (8)
  - Liver disorder [Unknown]
  - Hepatitis alcoholic [Unknown]
  - Hepatic function abnormal [Unknown]
  - Fall [Unknown]
  - Chest pain [Recovering/Resolving]
  - Rib fracture [Unknown]
  - Cough [Recovering/Resolving]
  - Treatment noncompliance [Unknown]

NARRATIVE: CASE EVENT DATE: 20220101
